FAERS Safety Report 6572390-5 (Version None)
Quarter: 2010Q1

REPORT INFORMATION
  Report Type: 
  Country: None (occurrence: None)
  Receive Date: 20100205
  Receipt Date: 20100126
  Transmission Date: 20100710
  Serious: Yes (Death)
  Sender: FDA-Public Use
  Company Number: JP-BRISTOL-MYERS SQUIBB COMPANY-14960579

PATIENT
  Age: 54 Year
  Sex: Male

DRUGS (6)
  1. ABILIFY [Suspect]
     Indication: SCHIZOPHRENIA
     Route: 048
     Dates: start: 20090915
  2. RISPERDAL [Suspect]
     Dosage: GRANULE
     Route: 048
  3. AKINETON [Suspect]
     Dosage: GRANULE
     Route: 048
  4. DEPAS [Suspect]
     Dosage: GRANULE
     Route: 048
  5. SILECE [Suspect]
     Dosage: TABS
     Route: 048
  6. LULLAN [Suspect]
     Dosage: TABS
     Route: 048

REACTIONS (1)
  - SUDDEN DEATH [None]
